FAERS Safety Report 6217567-3 (Version None)
Quarter: 2009Q2

REPORT INFORMATION
  Report Type: 
  Country: None (occurrence: None)
  Receive Date: 20090608
  Receipt Date: 20090223
  Transmission Date: 20091009
  Serious: No
  Sender: FDA-Public Use
  Company Number: A0770501A

PATIENT
  Sex: Female

DRUGS (1)
  1. WELLBUTRIN XL [Suspect]
     Indication: DRUG USE FOR UNKNOWN INDICATION
     Dosage: 300MG UNKNOWN
     Route: 048

REACTIONS (7)
  - ADVERSE DRUG REACTION [None]
  - EAR DISORDER [None]
  - ERYTHEMA [None]
  - FEELING HOT [None]
  - FLATULENCE [None]
  - FLUSHING [None]
  - PRURITUS [None]
